FAERS Safety Report 4811711-8 (Version None)
Quarter: 2005Q4

REPORT INFORMATION
  Report Type: 
  Country: None (occurrence: None)
  Receive Date: 20051025
  Receipt Date: 20051012
  Transmission Date: 20060501
  Serious: Yes (Hospitalization)
  Sender: FDA-Public Use
  Company Number: 2005142254

PATIENT
  Age: 55 Year
  Sex: Female

DRUGS (6)
  1. LYRICA [Suspect]
     Indication: NEURALGIA
     Dosage: 75 M G (75 MG, 1 IN 1 D), ORAL
     Route: 048
  2. BETA BLOCKING AGENTS (BETA BLOCKING AGENTS) [Concomitant]
  3. RAMIPRIL [Concomitant]
  4. NEURONTIN [Concomitant]
  5. NORVASC [Concomitant]
  6. VALIUM [Concomitant]

REACTIONS (3)
  - ELECTROCARDIOGRAM ABNORMAL [None]
  - PALPITATIONS [None]
  - SOMNOLENCE [None]
